FAERS Safety Report 5672017-0 (Version None)
Quarter: 2008Q1

REPORT INFORMATION
  Report Type: 
  Country: None (occurrence: None)
  Receive Date: 20080317
  Receipt Date: 20080317
  Transmission Date: 20080703
  Serious: Yes (Death)
  Sender: FDA-Public Use
  Company Number: None

PATIENT
  Age: 41 Year
  Sex: Female
  Weight: 52.5 kg

DRUGS (5)
  1. TENOFOVIR/EMTRICITABINE [Suspect]
     Indication: HIV INFECTION
     Dosage: 300/200 MG DAILY ORAL
     Route: 048
     Dates: start: 20070920, end: 20080215
  2. LOPINAVIR AND RITONAVIR [Suspect]
     Dosage: 200/50 MG TWICE DAILY ORAL
     Route: 048
     Dates: start: 20070920, end: 20071030
  3. NEVIRAPINE [Suspect]
     Indication: HIV INFECTION
     Dosage: 200 MG TWICE DAILY ORAL
     Route: 048
     Dates: start: 20071031, end: 20080215
  4. COTRIMAXOZOLE [Concomitant]
  5. ISONIAZID [Concomitant]

REACTIONS (43)
  - ABDOMINAL INFECTION [None]
  - ABDOMINAL PAIN [None]
  - ASPIRATION [None]
  - BLOOD PRESSURE DIASTOLIC DECREASED [None]
  - BLOOD SODIUM DECREASED [None]
  - BLOOD UREA DECREASED [None]
  - BRAIN DEATH [None]
  - CACHEXIA [None]
  - CENTRAL NERVOUS SYSTEM INFECTION [None]
  - CENTRAL NERVOUS SYSTEM LYMPHOMA [None]
  - CEREBROVASCULAR DISORDER [None]
  - CERVIX CARCINOMA STAGE II [None]
  - CONFUSIONAL STATE [None]
  - COUGH [None]
  - CSF TEST ABNORMAL [None]
  - DEHYDRATION [None]
  - DISORIENTATION [None]
  - DIZZINESS [None]
  - DYSPNOEA [None]
  - GENITAL ULCERATION [None]
  - GLIOBLASTOMA MULTIFORME [None]
  - HAEMOGLOBIN DECREASED [None]
  - HEART SOUNDS ABNORMAL [None]
  - HEPATIC LESION [None]
  - HYPOXIC ENCEPHALOPATHY [None]
  - INTERNATIONAL NORMALISED RATIO INCREASED [None]
  - LUNG INFILTRATION [None]
  - MENTAL STATUS CHANGES [None]
  - OROPHARYNGEAL CANDIDIASIS [None]
  - PALPITATIONS [None]
  - PELVIC INFECTION [None]
  - PELVIC INFLAMMATORY DISEASE [None]
  - PULMONARY TUBERCULOSIS [None]
  - PULSE ABSENT [None]
  - PURULENT DISCHARGE [None]
  - RESPIRATORY DISORDER [None]
  - RESPIRATORY FAILURE [None]
  - UNRESPONSIVE TO STIMULI [None]
  - VAGINAL DISCHARGE [None]
  - VAGINAL HAEMORRHAGE [None]
  - VOMITING [None]
  - WEIGHT DECREASED [None]
  - WHITE BLOOD CELL COUNT DECREASED [None]
